FAERS Safety Report 9709918 (Version 1)
Quarter: 2013Q4

REPORT INFORMATION
  Report Type: Spontaneous
  Country: US (occurrence: US)
  Receive Date: 20131126
  Receipt Date: 20131126
  Transmission Date: 20140711
  Serious: Yes (Other)
  Sender: FDA-Public Use
  Company Number: US-BAYER-2013-142872

PATIENT
  Age: 62 Year
  Sex: Female
  Weight: 78.01 kg

DRUGS (12)
  1. BETASERON [Suspect]
     Indication: MULTIPLE SCLEROSIS
     Dosage: 0.25 MG, QOD
     Route: 058
  2. OSCAL [Concomitant]
  3. NASONEX [Concomitant]
     Dosage: 50MCG/AC
  4. FLUOCINONIDE [FLUOCINOLONE ACETONIDE] [Concomitant]
  5. BONIVA [Concomitant]
  6. MELATONIN [Concomitant]
  7. CEPHALEXIN [Concomitant]
  8. TYLENOL #3 [Concomitant]
  9. LEVAQUIN [Concomitant]
  10. FOSINOPRIL [Concomitant]
  11. LANSOPRAZOLE [Concomitant]
  12. CALCIUM +VIT D [Concomitant]

REACTIONS (6)
  - Upper respiratory tract infection [Unknown]
  - Urinary tract infection [Unknown]
  - Hypoaesthesia [Unknown]
  - Paraesthesia [None]
  - Musculoskeletal stiffness [Recovered/Resolved]
  - Mobility decreased [Unknown]
